FAERS Safety Report 10424116 (Version 1)
Quarter: 2014Q3

REPORT INFORMATION
  Report Type: Spontaneous
  Country: US (occurrence: None)
  Receive Date: 20140722
  Receipt Date: 20140722
  Transmission Date: 20150326
  Serious: No
  Sender: FDA-Public Use
  Company Number: 163-10004-14051660

PATIENT
  Age: 42 Year
  Sex: Female

DRUGS (4)
  1. ENJUVIA (ESTROGENS CONJUGATED) [Concomitant]
  2. TICLID (TICLOPIDINE HYDROCHLORIDE) [Concomitant]
  3. OMEPRAZOLE (OMEPRAZOLE) [Concomitant]
     Active Substance: OMEPRAZOLE
  4. OTEZLA [Suspect]
     Active Substance: APREMILAST
     Indication: PSORIATIC ARTHROPATHY
     Route: 048
     Dates: start: 20140414

REACTIONS (2)
  - Nausea [None]
  - Migraine [None]

NARRATIVE: CASE EVENT DATE: 20140416
